FAERS Safety Report 4366215-6 (Version None)
Quarter: 2004Q2

REPORT INFORMATION
  Report Type: 
  Country: None (occurrence: None)
  Receive Date: 20040527
  Receipt Date: 20040308
  Transmission Date: 20050107
  Serious: No
  Sender: FDA-Public Use
  Company Number: US-BRISTOL-MYERS SQUIBB COMPANY-12529160

PATIENT
  Age: 82 Year
  Sex: Female

DRUGS (1)
  1. DEFINITY [Suspect]
     Indication: STRESS ECHOCARDIOGRAM
     Dosage: RECEIVED TOTAL DOSE OF DEFINITY 1.5CC IN 10ML SALINE.
     Route: 040
     Dates: start: 20040308

REACTIONS (4)
  - HYPOTENSION [None]
  - RESPIRATORY DISTRESS [None]
  - URTICARIA [None]
  - WHEEZING [None]
